FAERS Safety Report 7991588-2 (Version None)
Quarter: 2011Q4

REPORT INFORMATION
  Report Type: 
  Country: None (occurrence: None)
  Receive Date: 20111219
  Receipt Date: 20111208
  Transmission Date: 20120403
  Serious: Yes (Other)
  Sender: FDA-Public Use
  Company Number: NL-BAXTER-2011BH038821

PATIENT
  Age: 36 Year
  Sex: Male

DRUGS (6)
  1. PREGNYL [Concomitant]
     Indication: PRODUCT USED FOR UNKNOWN INDICATION
     Dosage: 1500 IE X 3X PER WEEK 1 INJ
     Route: 065
  2. GAMMAGARD LIQUID [Suspect]
     Indication: MULTIFOCAL MOTOR NEUROPATHY
     Dosage: 1X PER 21 DAGEN
     Route: 042
     Dates: start: 20080102
  3. GAMMAGARD LIQUID [Suspect]
     Route: 042
     Dates: start: 20111208
  4. LEVOTHYROXINE SODIUM [Concomitant]
     Indication: PRODUCT USED FOR UNKNOWN INDICATION
     Dosage: 75 MCG X 1X1
     Route: 065
  5. NORPROLAC ^NOVARTIS^ [Concomitant]
     Indication: PRODUCT USED FOR UNKNOWN INDICATION
     Dosage: 75 MCG X 1X2
     Route: 065
  6. GAMMAGARD LIQUID [Suspect]
     Route: 042
     Dates: start: 20111115

REACTIONS (1)
  - PNEUMONIA [None]
